FAERS Safety Report 20691119 (Version 3)
Quarter: 2022Q3

REPORT INFORMATION
  Report Type: Spontaneous
  Country: US (occurrence: US)
  Receive Date: 20220408
  Receipt Date: 20220801
  Transmission Date: 20221027
  Serious: Yes (Hospitalization, Other)
  Sender: FDA-Public Use
  Company Number: US-BRISTOL-MYERS SQUIBB COMPANY-2022-015033

PATIENT
  Age: 62 Year
  Sex: Female
  Weight: 55.3 kg

DRUGS (3)
  1. REVLIMID [Suspect]
     Active Substance: LENALIDOMIDE
     Indication: Plasma cell myeloma
     Dosage: 21D ON 7D OFF
     Route: 048
     Dates: start: 20220305
  2. REVLIMID [Suspect]
     Active Substance: LENALIDOMIDE
     Dosage: 21D ON 7D OFF
     Route: 048
  3. REVLIMID [Suspect]
     Active Substance: LENALIDOMIDE
     Route: 048

REACTIONS (2)
  - Oropharyngeal pain [Not Recovered/Not Resolved]
  - Neutropenia [Unknown]
